FAERS Safety Report 9282819 (Version 2)
Quarter: 2013Q2

REPORT INFORMATION
  Report Type: Report from Study
  Country: AU (occurrence: AU)
  Receive Date: 20130510
  Receipt Date: 20130523
  Transmission Date: 20140414
  Serious: Yes (Life-Threatening, Hospitalization, Other)
  Sender: FDA-Public Use
  Company Number: PHHY2013AU040362

PATIENT
  Age: 31 Year
  Sex: Male

DRUGS (5)
  1. CLOZARIL [Suspect]
     Indication: SCHIZOPHRENIA
     Dosage: 100 MG, QD
     Route: 048
     Dates: start: 20120209
  2. CLOZARIL [Suspect]
     Dosage: 3 G (30 X 100 MG TABLET)
     Route: 048
     Dates: start: 20130415
  3. CLOZARIL [Suspect]
     Dosage: UNK
     Route: 048
     Dates: end: 20130418
  4. DIAZEPAM [Concomitant]
     Dosage: 5 MG, (48 X 5)
     Route: 048
  5. NITRAZEPAM [Concomitant]
     Dosage: 5 MG, (23X 5MG)
     Route: 048

REACTIONS (10)
  - Sedation [Recovered/Resolved]
  - Somnolence [Recovered/Resolved]
  - Suicide attempt [Recovered/Resolved]
  - Overdose [Recovered/Resolved]
  - Rhabdomyolysis [Recovering/Resolving]
  - Muscle injury [Recovering/Resolving]
  - Blood creatine phosphokinase increased [Recovered/Resolved]
  - Myalgia [Recovering/Resolving]
  - Loss of consciousness [Unknown]
  - Salivary hypersecretion [Unknown]
